FAERS Safety Report 15164678 (Version 1)
Quarter: 2018Q3

REPORT INFORMATION
  Report Type: Spontaneous
  Country: US (occurrence: US)
  Receive Date: 20180621
  Receipt Date: 20180621
  Transmission Date: 20181010
  Serious: No
  Sender: FDA-Public Use
  Company Number: None

PATIENT
  Age: 40 Year
  Sex: Female
  Weight: 81 kg

DRUGS (4)
  1. ENPRESSE [Suspect]
     Active Substance: ETHINYL ESTRADIOL\LEVONORGESTREL
  2. FLUTICASONE PROPIONATE NASAL SPRAY USP 50 MCG. PER SPRAY [Suspect]
     Active Substance: FLUTICASONE PROPIONATE
     Indication: SINUSITIS
     Dosage: ?          OTHER STRENGTH:MCG;QUANTITY:1 SPRAY(S);OTHER ROUTE:INTO EACH NOSTRIL?
     Dates: start: 20170927, end: 20170929
  3. LEVOTHYROXINE. [Concomitant]
     Active Substance: LEVOTHYROXINE
  4. LORATADINE. [Concomitant]
     Active Substance: LORATADINE

REACTIONS (3)
  - Dysgeusia [None]
  - Parosmia [None]
  - Impaired quality of life [None]

NARRATIVE: CASE EVENT DATE: 20170929
